FAERS Safety Report 17044867 (Version 2)
Quarter: 2020Q1

REPORT INFORMATION
  Report Type: Spontaneous
  Country: US (occurrence: US)
  Receive Date: 20191118
  Receipt Date: 20200221
  Transmission Date: 20200409
  Serious: No
  Sender: FDA-Public Use
  Company Number: US-IBSA PHARMA-TIR-2019-0644

PATIENT
  Age: 55 Year
  Sex: Female

DRUGS (8)
  1. TIROSINT [Suspect]
     Active Substance: LEVOTHYROXINE SODIUM
     Indication: PARATHYROIDECTOMY
     Dosage: 75MCG 3 DAYS IN A ROW THEN 112MCG ON THE 4TH DAY THEN BACK TO 75MCG
     Route: 048
     Dates: start: 201908, end: 201908
  2. TRIIODOTHYRONINE (T3) [Concomitant]
     Indication: PRODUCT USED FOR UNKNOWN INDICATION
  3. CITRACAL [Suspect]
     Active Substance: CALCIUM CITRATE
     Indication: PRODUCT USED FOR UNKNOWN INDICATION
  4. TIROSINT [Suspect]
     Active Substance: LEVOTHYROXINE SODIUM
     Indication: THYROIDECTOMY
     Dosage: 75MCG AND 112MCG ALTERNATING DAYS OF THE WEEK
     Route: 048
     Dates: start: 201907
  5. TIROSINT [Suspect]
     Active Substance: LEVOTHYROXINE SODIUM
     Indication: PARATHYROIDECTOMY
     Dosage: 75MCG 3 DAYS IN A ROW THEN 112MCG ON THE 4TH DAY THEN BACK TO 75MCG
     Route: 048
     Dates: start: 201907
  6. TIROSINT [Suspect]
     Active Substance: LEVOTHYROXINE SODIUM
     Indication: THYROIDECTOMY
     Dosage: 75MCG AND 112MCG ALTERNATING DAYS OF THE WEEK
     Route: 048
     Dates: start: 201908
  7. TIROSINT [Suspect]
     Active Substance: LEVOTHYROXINE SODIUM
     Route: 048
     Dates: start: 201908
  8. VITAMIN D3 [Suspect]
     Active Substance: CHOLECALCIFEROL
     Indication: PRODUCT USED FOR UNKNOWN INDICATION

REACTIONS (7)
  - Drug level above therapeutic [Unknown]
  - Drug level below therapeutic [Unknown]
  - Paraesthesia [Unknown]
  - Hypoaesthesia [Unknown]
  - Headache [Unknown]
  - Blood test abnormal [Unknown]
  - Chest pain [Recovered/Resolved]

NARRATIVE: CASE EVENT DATE: 2019
